FAERS Safety Report 5166280-2 (Version None)
Quarter: 2006Q4

REPORT INFORMATION
  Report Type: 
  Country: None (occurrence: None)
  Receive Date: 20060830
  Receipt Date: 20060520
  Transmission Date: 20070319
  Serious: No
  Sender: FDA-Public Use
  Company Number: 221133

PATIENT
  Age: 60 Year
  Sex: Female

DRUGS (11)
  1. XOLAIR [Suspect]
     Indication: ASTHMA
     Dosage: 150 MG, SUBCUTANEOUS
     Route: 058
     Dates: start: 20051020, end: 20060110
  2. XOLAIR [Suspect]
  3. SYNTHROID [Concomitant]
  4. ALLEGRA-D (FEXOFENADINE HYDROCHLORIDE, PSEUDOEPHEDRINE HYDROCHLORIDE) [Concomitant]
  5. ALLERX-D (PSEUDOEPHEDRINE HYDROCHLORIDE, SCOPOLAMINE METHYL NITRATE) [Concomitant]
  6. PREMPRO [Concomitant]
  7. PREDNISONE TAB [Concomitant]
  8. PROTONIX [Concomitant]
  9. ADVAIR DISKUS 100/50 [Concomitant]
  10. QVAR 40 [Concomitant]
  11. AMBIEN [Concomitant]

REACTIONS (2)
  - ASTHMA [None]
  - HYPERSENSITIVITY [None]
